FAERS Safety Report 23103698 (Version 1)
Quarter: 2023Q4

REPORT INFORMATION
  Report Type: Spontaneous
  Country: US (occurrence: US)
  Receive Date: 20231025
  Receipt Date: 20231025
  Transmission Date: 20240110
  Serious: No
  Sender: FDA-Public Use
  Company Number: US-PFIZER INC-202300334571

PATIENT
  Age: 73 Year
  Sex: Male
  Weight: 103.87 kg

DRUGS (1)
  1. PAXLOVID [Suspect]
     Active Substance: NIRMATRELVIR\RITONAVIR
     Indication: COVID-19 treatment
     Dosage: 2 TABLETS IN THE MORNING AND 2 TABLETS IN THE EVENING
     Dates: start: 20231012, end: 20231017

REACTIONS (5)
  - Anxiety [Unknown]
  - Panic attack [Unknown]
  - Feeling abnormal [Unknown]
  - Indifference [Unknown]
  - Social avoidant behaviour [Unknown]

NARRATIVE: CASE EVENT DATE: 20230101
